FAERS Safety Report 11239522 (Version 1)
Quarter: 2015Q3

REPORT INFORMATION
  Report Type: Spontaneous
  Country: US (occurrence: None)
  Receive Date: 20150701
  Receipt Date: 20150701
  Transmission Date: 20151125
  Serious: Yes (Other)
  Sender: FDA-Public Use
  Company Number: None

PATIENT
  Age: 70 Year
  Sex: Male
  Weight: 90.72 kg

DRUGS (18)
  1. TAMSULOSIN [Concomitant]
     Active Substance: TAMSULOSIN
  2. CALCIUM [Concomitant]
     Active Substance: CALCIUM
  3. SUPER B COMPLEX [Concomitant]
     Active Substance: CYANOCOBALAMIN\DEXPANTHENOL\NIACINAMIDE\PYRIDOXINE HYDROCHLORIDE\RIBOFLAVIN 5^-PHOSPHATE SODIUM\THIAMINE HYDROCHLORIDE\VITAMIN B COMPLEX
  4. BYDUREON [Suspect]
     Active Substance: EXENATIDE
     Indication: TYPE 2 DIABETES MELLITUS
     Dosage: 1 INJECT/WEEK  1X WEEK  GIVEN INTO/UNDER THE SKIN
     Route: 058
     Dates: start: 20150426, end: 20150509
  5. INSULIN GLARGINE [Concomitant]
     Active Substance: INSULIN GLARGINE
  6. INSULIN LISPRO [Concomitant]
     Active Substance: INSULIN LISPRO
  7. HCTZ [Concomitant]
     Active Substance: HYDROCHLOROTHIAZIDE
  8. GLUCHOSAMIN [Concomitant]
  9. D3 [Concomitant]
     Active Substance: 25-HYDROXYCHOLECALCIFEROL, 5-TRANS-
  10. ASPIRIN. [Concomitant]
     Active Substance: ASPIRIN
  11. CHONDROITIN [Concomitant]
     Active Substance: CHONDROITIN
  12. MSM [Concomitant]
     Active Substance: DIMETHYL SULFONE
  13. METOPROLOL [Concomitant]
     Active Substance: METOPROLOL
  14. DULOXITENE [Concomitant]
  15. METFORMIN [Concomitant]
     Active Substance: METFORMIN HYDROCHLORIDE
  16. CO-Q 10 [Concomitant]
  17. RAMIPRIL. [Concomitant]
     Active Substance: RAMIPRIL
  18. VITAMIN B COMPLEX [Concomitant]
     Active Substance: CYANOCOBALAMIN\DEXPANTHENOL\NIACINAMIDE\PYRIDOXINE HYDROCHLORIDE\RIBOFLAVIN 5^-PHOSPHATE SODIUM\THIAMINE HYDROCHLORIDE\VITAMIN B COMPLEX

REACTIONS (7)
  - Oesophageal discomfort [None]
  - Gingival disorder [None]
  - Gingival atrophy [None]
  - Gingival pain [None]
  - Dyspepsia [None]
  - Gingival swelling [None]
  - Gingival bleeding [None]

NARRATIVE: CASE EVENT DATE: 20150426
